FAERS Safety Report 9359417 (Version 2)
Quarter: 2013Q3

REPORT INFORMATION
  Report Type: Report from Study
  Country: FR (occurrence: FR)
  Receive Date: 20130620
  Receipt Date: 20130719
  Transmission Date: 20140515
  Serious: Yes (Death, Hospitalization)
  Sender: FDA-Public Use
  Company Number: FR-PFIZER INC-2013180617

PATIENT
  Sex: Male
  Weight: 54 kg

DRUGS (1)
  1. TORISEL [Suspect]
     Indication: MANTLE CELL LYMPHOMA
     Dosage: 75 MG, WEEKLY
     Route: 042
     Dates: start: 20101015, end: 20101022

REACTIONS (4)
  - Multi-organ failure [Fatal]
  - Failure to thrive [Fatal]
  - Hyponatraemia [Recovered/Resolved]
  - Pancytopenia [Recovered/Resolved]
